FAERS Safety Report 18680999 (Version 1)
Quarter: 2020Q4

REPORT INFORMATION
  Report Type: Spontaneous
  Country: DE (occurrence: DE)
  Receive Date: 20201230
  Receipt Date: 20201230
  Transmission Date: 20210114
  Serious: Yes (Other)
  Sender: FDA-Public Use
  Company Number: DE-JNJFOC-20201249484

PATIENT

DRUGS (1)
  1. REGAINE UNSPECIFIED [Suspect]
     Active Substance: MINOXIDIL
     Indication: PRODUCT USED FOR UNKNOWN INDICATION
     Route: 065

REACTIONS (4)
  - Depression [Unknown]
  - Hot flush [Unknown]
  - Arrhythmia [Unknown]
  - Panic attack [Unknown]
